FAERS Safety Report 25798620 (Version 1)
Quarter: 2025Q3

REPORT INFORMATION
  Report Type: Spontaneous
  Country: CA (occurrence: CA)
  Receive Date: 20250913
  Receipt Date: 20250913
  Transmission Date: 20251020
  Serious: Yes (Hospitalization, Other)
  Sender: AUROBINDO
  Company Number: CA-AUROBINDO-AUR-APL-2025-045534

PATIENT
  Age: 50 Year
  Weight: 49 kg

DRUGS (2)
  1. SERTRALINE [Suspect]
     Active Substance: SERTRALINE HYDROCHLORIDE
     Indication: Adjustment disorder with mixed anxiety and depressed mood
     Dosage: 1000 MILLIGRAM, ONCE A DAY
     Route: 048
  2. TRAZODONE [Suspect]
     Active Substance: TRAZODONE HYDROCHLORIDE
     Indication: Insomnia
     Dosage: 50 MILLIGRAM, ONCE A DAY
     Route: 048

REACTIONS (13)
  - Acute hepatic failure [Recovering/Resolving]
  - Altered state of consciousness [Recovering/Resolving]
  - Serotonin syndrome [Recovering/Resolving]
  - Hepatitis acute [Recovering/Resolving]
  - Myopathy toxic [Recovering/Resolving]
  - Asthenia [Recovering/Resolving]
  - Blood creatine phosphokinase increased [Recovering/Resolving]
  - Clostridium test positive [Recovering/Resolving]
  - Diarrhoea [Recovering/Resolving]
  - Drug metabolising enzyme decreased [Recovering/Resolving]
  - Fall [Recovering/Resolving]
  - Metabolic myopathy [Recovering/Resolving]
  - Rhabdomyolysis [Recovering/Resolving]
